FAERS Safety Report 8938143 (Version 2)
Quarter: 2013Q1

REPORT INFORMATION
  Report Type: Spontaneous
  Country: GB (occurrence: GB)
  Receive Date: 20121130
  Receipt Date: 20130110
  Transmission Date: 20140127
  Serious: Yes (Hospitalization)
  Sender: FDA-Public Use
  Company Number: GB-JNJFOC-20121113001

PATIENT
  Age: 2 None
  Sex: Male

DRUGS (1)
  1. CALPOL [Suspect]
     Indication: COUGH
     Dosage: APPROXIMATELY 1680MG
     Route: 048
     Dates: start: 20121120

REACTIONS (3)
  - Accidental overdose [Recovered/Resolved]
  - Vomiting [Recovered/Resolved]
  - Product packaging issue [Unknown]
